FAERS Safety Report 17198979 (Version 10)
Quarter: 2020Q4

REPORT INFORMATION
  Report Type: Spontaneous
  Country: DE (occurrence: DE)
  Receive Date: 20191225
  Receipt Date: 20201204
  Transmission Date: 20210113
  Serious: Yes (Other)
  Sender: FDA-Public Use
  Company Number: NVSC2019DE076514

PATIENT
  Sex: Male
  Weight: 92 kg

DRUGS (2)
  1. VALSARTAN - 1 A PHARMA 80 MG FILMTABLETTEN [Suspect]
     Active Substance: VALSARTAN
     Dosage: 1 DF, QD
     Route: 065
     Dates: start: 20160714, end: 20180720
  2. VALSARTAN - 1 A PHARMA 80 MG FILMTABLETTEN [Suspect]
     Active Substance: VALSARTAN
     Indication: HYPERTENSION
     Dosage: 1 DF, QD
     Route: 065
     Dates: start: 201603, end: 201807

REACTIONS (16)
  - Epstein-Barr virus infection [Unknown]
  - Blood pressure inadequately controlled [Unknown]
  - Lymphadenopathy [Unknown]
  - Injury [Unknown]
  - Accident [Unknown]
  - Thyroid mass [Unknown]
  - Nasal congestion [Unknown]
  - Headache [Recovered/Resolved]
  - Arrhythmia [Unknown]
  - Contusion [Unknown]
  - Muscle tightness [Unknown]
  - Palpitations [Unknown]
  - Emotional distress [Not Recovered/Not Resolved]
  - Splenomegaly [Recovering/Resolving]
  - Blood pressure increased [Unknown]
  - Productive cough [Unknown]

NARRATIVE: CASE EVENT DATE: 201603
